FAERS Safety Report 7568580-5 (Version None)
Quarter: 2011Q2

REPORT INFORMATION
  Report Type: 
  Country: None (occurrence: None)
  Receive Date: 20110617
  Receipt Date: 20110606
  Transmission Date: 20111010
  Serious: Yes (Other)
  Sender: FDA-Public Use
  Company Number: 2011MA007035

PATIENT
  Sex: Male

DRUGS (3)
  1. METFORMIN HYDROCHLORIDE [Suspect]
  2. GLICLAZIDE (GLICLAZIDE) [Suspect]
  3. INHALERS [Concomitant]

REACTIONS (4)
  - PULMONARY FIBROSIS [None]
  - CONDITION AGGRAVATED [None]
  - BRONCHIECTASIS [None]
  - UNEVALUABLE EVENT [None]
